FAERS Safety Report 18084607 (Version 1)
Quarter: 2020Q3

REPORT INFORMATION
  Report Type: Spontaneous
  Country: IN (occurrence: IN)
  Receive Date: 20200728
  Receipt Date: 20200728
  Transmission Date: 20201103
  Serious: Yes (Other)
  Sender: FDA-Public Use
  Company Number: NVSC2020IN210298

PATIENT
  Age: 43 Year
  Sex: Male

DRUGS (3)
  1. METHYLPREDNISOLONE. [Suspect]
     Active Substance: METHYLPREDNISOLONE
     Indication: LIMBIC ENCEPHALITIS
     Dosage: 1 G
     Route: 042
  2. HALOPERIDOL. [Suspect]
     Active Substance: HALOPERIDOL
     Indication: LIMBIC ENCEPHALITIS
     Dosage: 5 MG, BID
     Route: 065
  3. INSULIN INJECTION [Concomitant]
     Active Substance: INSULIN NOS
     Indication: DIABETES MELLITUS
     Dosage: UNK
     Route: 058

REACTIONS (7)
  - Polydipsia [Recovered/Resolved]
  - Hypomania [Recovered/Resolved]
  - Insomnia [Recovered/Resolved]
  - Diabetes mellitus [Recovered/Resolved]
  - Hyperphagia [Recovered/Resolved]
  - Product use in unapproved indication [Unknown]
  - Polyuria [Recovered/Resolved]
